FAERS Safety Report 9225417 (Version 2)
Quarter: 2013Q2

REPORT INFORMATION
  Report Type: Report from Study
  Country: FI (occurrence: FI)
  Receive Date: 20130411
  Receipt Date: 20130522
  Transmission Date: 20140414
  Serious: Yes (Death)
  Sender: FDA-Public Use
  Company Number: FI-ROCHE-1210549

PATIENT
  Sex: 0

DRUGS (2)
  1. ALTEPLASE [Suspect]
     Indication: ISCHAEMIC STROKE
     Route: 065
  2. ALTEPLASE [Suspect]
     Indication: CEREBRAL INFARCTION

REACTIONS (1)
  - Death [Fatal]
